FAERS Safety Report 13948825 (Version 1)
Quarter: 2017Q3

REPORT INFORMATION
  Report Type: Spontaneous
  Country: IT (occurrence: IT)
  Receive Date: 20170908
  Receipt Date: 20170908
  Transmission Date: 20171128
  Serious: Yes (Hospitalization, Other)
  Sender: FDA-Public Use
  Company Number: IT-PFIZER INC-2017388250

PATIENT
  Age: 31 Year
  Sex: Female

DRUGS (1)
  1. PHENYTOIN. [Suspect]
     Active Substance: PHENYTOIN
     Indication: MYOTONIC DYSTROPHY
     Dosage: INCREASING DOSES UP TO 400 MG/DAY)
     Route: 048

REACTIONS (2)
  - Anticonvulsant drug level increased [Recovered/Resolved]
  - Ventricular tachycardia [Recovered/Resolved]
